FAERS Safety Report 16008464 (Version 7)
Quarter: 2019Q2

REPORT INFORMATION
  Report Type: Report from Study
  Country: US (occurrence: US)
  Receive Date: 20190225
  Receipt Date: 20190425
  Transmission Date: 20190711
  Serious: Yes (Other)
  Sender: FDA-Public Use
  Company Number: US-ASTELLAS-2019US006430

PATIENT
  Age: 74 Year
  Sex: Male

DRUGS (1)
  1. ENZALUTAMIDE [Suspect]
     Active Substance: ENZALUTAMIDE
     Indication: PROSTATE CANCER
     Route: 065

REACTIONS (10)
  - Anorectal discomfort [Unknown]
  - Asthenia [Unknown]
  - Lymphadenopathy [Unknown]
  - Osteoarthritis [Unknown]
  - Rectal discharge [Unknown]
  - Intentional product misuse [Unknown]
  - Hypertension [Unknown]
  - Aortic aneurysm [Unknown]
  - Fatigue [Not Recovered/Not Resolved]
  - Haemorrhage [Unknown]

NARRATIVE: CASE EVENT DATE: 201901
